FAERS Safety Report 9663668 (Version 2)
Quarter: 2013Q4

REPORT INFORMATION
  Report Type: Spontaneous
  Country: EG (occurrence: EG)
  Receive Date: 20131101
  Receipt Date: 20131115
  Transmission Date: 20140711
  Serious: Yes (Death, Hospitalization)
  Sender: FDA-Public Use
  Company Number: PHHY2013EG123693

PATIENT
  Age: 32 Year
  Sex: Female

DRUGS (2)
  1. VOLTAREN [Suspect]
  2. AZITHROMYCIN [Suspect]

REACTIONS (2)
  - Staphylococcal infection [Fatal]
  - Stevens-Johnson syndrome [Fatal]
